FAERS Safety Report 22255344 (Version 2)
Quarter: 2023Q2

REPORT INFORMATION
  Report Type: Spontaneous
  Country: US (occurrence: US)
  Receive Date: 20230426
  Receipt Date: 20230509
  Transmission Date: 20230722
  Serious: No
  Sender: FDA-Public Use
  Company Number: US-AGIOS-2304US03333

PATIENT
  Sex: Female

DRUGS (1)
  1. PYRUKYND [Suspect]
     Active Substance: MITAPIVAT
     Indication: Product used for unknown indication
     Dosage: 2 X 5 MILLIGRAM, Q8H
     Route: 048

REACTIONS (3)
  - Fatigue [Unknown]
  - Headache [Unknown]
  - Abdominal pain upper [Unknown]
